FAERS Safety Report 8922815 (Version 1)
Quarter: 2012Q4

REPORT INFORMATION
  Report Type: Spontaneous
  Country: JP (occurrence: None)
  Receive Date: 20121109
  Receipt Date: 20121109
  Transmission Date: 20130627
  Serious: Yes (Disabling)
  Sender: FDA-Public Use
  Company Number: 2012S1000551

PATIENT

DRUGS (2)
  1. CUBICIN [Suspect]
     Route: 042
     Dates: start: 201206, end: 201206
  2. RIFAMPICIN [Suspect]
     Indication: OSTEOMYELITIS
     Dates: end: 2012

REACTIONS (1)
  - Blood creatine phosphokinase increased [None]
